FAERS Safety Report 8871790 (Version 1)
Quarter: 2012Q4

REPORT INFORMATION
  Report Type: 
  Country: US (occurrence: US)
  Receive Date: 20121023
  Receipt Date: 20121023
  Transmission Date: 20130627
  Serious: Yes (Other)
  Sender: FDA-Public Use
  Company Number: US-ASTELLAS-2012US006861

PATIENT
  Sex: Male
  Weight: 77 kg

DRUGS (6)
  1. PROGRAF [Suspect]
     Indication: RENAL TRANSPLANT
     Dosage: 5.5 mg, UID/QD
     Route: 048
     Dates: start: 20080217
  2. PROGRAF [Suspect]
     Indication: PANCREAS TRANSPLANT
  3. MYFORTIC [Concomitant]
     Indication: RENAL TRANSPLANT
     Dosage: 360 mg, tid
     Route: 048
     Dates: start: 20080217
  4. MYFORTIC [Concomitant]
     Indication: PANCREAS TRANSPLANT
  5. CAPTOPRIL [Concomitant]
     Indication: BLOOD PRESSURE
     Dosage: 12.5 mg, UID/QD
     Route: 048
     Dates: start: 2008
  6. MIDODRINE [Concomitant]
     Indication: BLOOD PRESSURE
     Dosage: 10 mg, UID/QD
     Route: 048
     Dates: start: 2008

REACTIONS (2)
  - Off label use [Unknown]
  - Cerebrovascular accident [Unknown]
